FAERS Safety Report 7245291-7 (Version None)
Quarter: 2011Q1

REPORT INFORMATION
  Report Type: 
  Country: None (occurrence: None)
  Receive Date: 20110126
  Receipt Date: 20110117
  Transmission Date: 20110831
  Serious: Yes (Death, Life-Threatening)
  Sender: FDA-Public Use
  Company Number: FR-TYCO HEALTHCARE/MALLINCKRODT-T201002420

PATIENT
  Sex: Male
  Weight: 100 kg

DRUGS (7)
  1. PERINDOPRIL [Concomitant]
     Dosage: UNK
  2. CARBAMAZEPINE [Concomitant]
     Dosage: UNK
  3. OPTIJECT [Suspect]
     Indication: ANGIOGRAM
     Dosage: 70 ML, SINGLE
     Route: 042
     Dates: start: 20101209, end: 20101209
  4. ALEPSAL [Concomitant]
     Dosage: UNK
  5. KARDEGIC                           /00002703/ [Concomitant]
     Dosage: UNK
  6. ENANTONE                           /00726901/ [Concomitant]
     Dosage: UNK
  7. PANTOPRAZOLE [Concomitant]
     Dosage: UNK

REACTIONS (2)
  - ANAPHYLACTIC SHOCK [None]
  - CARDIAC ARREST [None]
